FAERS Safety Report 8613682 (Version 2)
Quarter: 2013Q3

REPORT INFORMATION
  Report Type: Spontaneous
  Country: US (occurrence: US)
  Receive Date: 20120614
  Receipt Date: 20130703
  Transmission Date: 20140515
  Serious: Yes (Other)
  Sender: FDA-Public Use
  Company Number: US-US-EMD SERONO, INC.-7024314

PATIENT
  Sex: Female

DRUGS (1)
  1. REBIF [Suspect]
     Indication: PRODUCT USED FOR UNKNOWN INDICATION
     Route: 058
     Dates: start: 20080612

REACTIONS (4)
  - Bone disorder [Unknown]
  - Osteoarthritis [Unknown]
  - Intervertebral disc degeneration [Unknown]
  - Feeling abnormal [Unknown]
